FAERS Safety Report 13909428 (Version 1)
Quarter: 2017Q3

REPORT INFORMATION
  Report Type: Spontaneous
  Country: CA (occurrence: CA)
  Receive Date: 20170828
  Receipt Date: 20170828
  Transmission Date: 20171127
  Serious: Yes (Death, Hospitalization, Other)
  Sender: FDA-Public Use
  Company Number: CA-ACCORD-057680

PATIENT
  Age: 18 Year
  Sex: Female
  Weight: 63 kg

DRUGS (7)
  1. ISONIAZID. [Concomitant]
     Active Substance: ISONIAZID
  2. PARACETAMOL [Suspect]
     Active Substance: ACETAMINOPHEN
  3. ALCOHOL. [Suspect]
     Active Substance: ALCOHOL
     Dosage: UNSPECIFIED DOSE OF ETHANOL
  4. ACETYLSALICYLIC ACID [Suspect]
     Active Substance: ASPIRIN
  5. CITALOPRAM [Concomitant]
     Active Substance: CITALOPRAM HYDROBROMIDE
  6. ATOMOXETINE/ATOMOXETINE HYDROCHLORIDE [Concomitant]
  7. QUETIAPINE. [Suspect]
     Active Substance: QUETIAPINE
     Dosage: APPROX 20 PILLS

REACTIONS (7)
  - Hepatic failure [Not Recovered/Not Resolved]
  - Myocarditis [Fatal]
  - Renal tubular necrosis [Unknown]
  - Encephalopathy [Unknown]
  - Myalgia [Unknown]
  - Overdose [Fatal]
  - Cardiac arrest [Fatal]
